FAERS Safety Report 9885575 (Version 2)
Quarter: 2014Q1

REPORT INFORMATION
  Report Type: Report from Study
  Country: NL (occurrence: NL)
  Receive Date: 20140210
  Receipt Date: 20140210
  Transmission Date: 20141002
  Serious: Yes (Death, Hospitalization)
  Sender: FDA-Public Use
  Company Number: PHHY2013NL109475

PATIENT
  Sex: Male

DRUGS (2)
  1. ZOMETA [Suspect]
     Indication: METASTASES TO BONE
     Dosage: 4 MG/100ML, ONCE EVERY 4 WEEKS
     Route: 042
     Dates: start: 20130906
  2. ZOMETA [Suspect]
     Dosage: UNK UKN, UNK
     Dates: start: 20130930

REACTIONS (4)
  - Death [Fatal]
  - Pyrexia [Unknown]
  - Haemoglobin decreased [Unknown]
  - Blood urine present [Unknown]
